FAERS Safety Report 9275029 (Version 2)
Quarter: 2013Q2

REPORT INFORMATION
  Report Type: Spontaneous
  Country: JP (occurrence: JP)
  Receive Date: 20130507
  Receipt Date: 20130528
  Transmission Date: 20140414
  Serious: Yes (Other)
  Sender: FDA-Public Use
  Company Number: JP-PFIZER INC-2013140014

PATIENT
  Age: 8 Decade
  Sex: Male

DRUGS (5)
  1. CELECOX [Suspect]
     Indication: OSTEOARTHRITIS
     Dosage: 100 MG, 2X/DAY
     Route: 048
     Dates: start: 20130404, end: 20130417
  2. MUCOSTA [Suspect]
     Indication: OSTEOARTHRITIS
     Dosage: UNK
     Route: 048
     Dates: start: 20130404, end: 20130417
  3. MOHRUS [Suspect]
     Indication: OSTEOARTHRITIS
     Dosage: UNK
     Route: 061
     Dates: start: 20130404, end: 20130417
  4. WARFARIN [Concomitant]
     Dosage: UNK
     Route: 048
  5. URSO [Concomitant]
     Dosage: UNK
     Route: 048

REACTIONS (1)
  - Purpura [Recovered/Resolved]
